FAERS Safety Report 25884028 (Version 1)
Quarter: 2025Q4

REPORT INFORMATION
  Report Type: Spontaneous
  Country: US (occurrence: None)
  Receive Date: 20251003
  Receipt Date: 20251003
  Transmission Date: 20260117
  Serious: Yes (Hospitalization)
  Sender: FDA-CTU
  Company Number: None

PATIENT
  Age: 66 Year
  Sex: Male
  Weight: 71.6 kg

DRUGS (8)
  1. DAPAGLIFLOZIN [Suspect]
     Active Substance: DAPAGLIFLOZIN
     Dates: start: 20230306, end: 20250828
  2. ASPIRIN [Concomitant]
     Active Substance: ASPIRIN
  3. LISINOPRIL [Concomitant]
     Active Substance: LISINOPRIL
  4. OMEPRAZOLE [Concomitant]
     Active Substance: OMEPRAZOLE
  5. SPIRONOLACTONE [Concomitant]
     Active Substance: SPIRONOLACTONE
  6. GLIPIZIDE [Concomitant]
     Active Substance: GLIPIZIDE
  7. LINAGLIPTIN [Concomitant]
     Active Substance: LINAGLIPTIN
  8. CARVEDILOL [Concomitant]
     Active Substance: CARVEDILOL

REACTIONS (6)
  - Vomiting [None]
  - Blood glucose increased [None]
  - Anion gap increased [None]
  - Blood ketone body increased [None]
  - Blood lactic acid increased [None]
  - Urine ketone body present [None]

NARRATIVE: CASE EVENT DATE: 20250828
